FAERS Safety Report 9171632 (Version 3)
Quarter: 2013Q4

REPORT INFORMATION
  Report Type: Spontaneous
  Country: US (occurrence: US)
  Receive Date: 20130319
  Receipt Date: 20131126
  Transmission Date: 20140711
  Serious: Yes (Hospitalization, Other)
  Sender: FDA-Public Use
  Company Number: US-009507513-1303USA008146

PATIENT
  Sex: Female
  Weight: 86.17 kg

DRUGS (11)
  1. FOSAMAX [Suspect]
     Indication: OSTEOPOROSIS
     Dosage: 70 MG, QW
     Route: 048
     Dates: start: 2006, end: 20100311
  2. FOSAMAX [Suspect]
     Indication: OSTEOPENIA
  3. CALCIUM (UNSPECIFIED) [Concomitant]
     Indication: OSTEOPOROSIS
     Dosage: 1000 MG, QD
     Dates: start: 1994
  4. VITAMINS (UNSPECIFIED) [Concomitant]
     Dosage: UNK, QD
     Dates: start: 1994
  5. ASCORBIC ACID [Concomitant]
     Dosage: 1000 MG, BID
     Dates: start: 1994
  6. VITAMIN D (UNSPECIFIED) [Concomitant]
     Dosage: 800 MG, QD
     Dates: start: 1994
  7. CORTICOSTEROIDS (UNSPECIFIED) [Concomitant]
     Dosage: UNK
     Dates: start: 1989, end: 2009
  8. ENALAPRIL MALEATE [Concomitant]
     Indication: HYPERTENSION
     Dosage: 2.5 MG, QD
     Dates: start: 2002
  9. CELEBREX [Concomitant]
     Indication: OSTEOARTHRITIS
     Dosage: UNK
     Route: 048
     Dates: start: 2001
  10. MIACALCIN [Concomitant]
  11. ESTROGENS (UNSPECIFIED) [Concomitant]
     Indication: OESTROGEN DEFICIENCY

REACTIONS (19)
  - Femur fracture [Recovering/Resolving]
  - Intramedullary rod insertion [Unknown]
  - Knee arthroplasty [Unknown]
  - Device related infection [Unknown]
  - Anaemia postoperative [Recovering/Resolving]
  - Spinal compression fracture [Unknown]
  - Hyponatraemia [Unknown]
  - Ligament sprain [Unknown]
  - Escherichia urinary tract infection [Unknown]
  - Sinusitis [Unknown]
  - Mastoiditis [Unknown]
  - Foot fracture [Unknown]
  - Skeletal injury [Unknown]
  - Spinal fracture [Unknown]
  - Medical device complication [Unknown]
  - Scoliosis [Unknown]
  - Body height decreased [Unknown]
  - Osteoarthritis [Unknown]
  - Chondrocalcinosis [Unknown]
